FAERS Safety Report 6271125-3 (Version None)
Quarter: 2009Q3

REPORT INFORMATION
  Report Type: 
  Country: None (occurrence: None)
  Receive Date: 20090716
  Receipt Date: 20090708
  Transmission Date: 20100115
  Serious: Yes (Hospitalization)
  Sender: FDA-Public Use
  Company Number: NZ-ASTRAZENECA-2009SE04267

PATIENT
  Age: 22207 Day
  Sex: Male

DRUGS (5)
  1. PRILOSEC [Suspect]
     Route: 048
     Dates: start: 20000224, end: 20000306
  2. DOMPERIDONE [Concomitant]
     Route: 048
     Dates: start: 20000218
  3. DILTIAZEM [Concomitant]
     Route: 048
     Dates: start: 19880101
  4. ACETYLSALICYLIC ACID SRT [Concomitant]
     Route: 048
     Dates: start: 19990101
  5. MUCILAX [Concomitant]
     Route: 048

REACTIONS (3)
  - HEPATIC ENZYME INCREASED [None]
  - LETHARGY [None]
  - VOMITING [None]
